FAERS Safety Report 21093941 (Version 1)
Quarter: 2022Q3

REPORT INFORMATION
  Report Type: Spontaneous
  Country: US (occurrence: US)
  Receive Date: 20220718
  Receipt Date: 20220718
  Transmission Date: 20221027
  Serious: No
  Sender: FDA-Public Use
  Company Number: US-GILEAD-2022-0589275

PATIENT
  Sex: Female

DRUGS (10)
  1. EPCLUSA [Suspect]
     Active Substance: SOFOSBUVIR\VELPATASVIR
     Indication: Chronic hepatitis C
     Dosage: 1 DOSAGE FORM, QD
     Route: 048
  2. ALBUTEROL SULFATE [Concomitant]
     Active Substance: ALBUTEROL SULFATE
  3. CARVEDILOL [Concomitant]
     Active Substance: CARVEDILOL
  4. CELECOXIB [Concomitant]
     Active Substance: CELECOXIB
  5. DULCOLAX (BISACODYL) [Concomitant]
     Active Substance: BISACODYL
  6. DULOXETINE HYDROCHLORIDE [Concomitant]
     Active Substance: DULOXETINE HYDROCHLORIDE
  7. INDAPAMIDE [Concomitant]
     Active Substance: INDAPAMIDE
  8. LYRICA [Concomitant]
     Active Substance: PREGABALIN
  9. MAGNESIUM SULFATE [Concomitant]
     Active Substance: MAGNESIUM SULFATE
  10. OMEPRAZOLE [Concomitant]
     Active Substance: OMEPRAZOLE

REACTIONS (2)
  - Dry mouth [Recovered/Resolved]
  - Dyspepsia [Recovered/Resolved]
